FAERS Safety Report 24962426 (Version 1)
Quarter: 2025Q1

REPORT INFORMATION
  Report Type: Spontaneous
  Country: GB (occurrence: GB)
  Receive Date: 20250212
  Receipt Date: 20250212
  Transmission Date: 20250409
  Serious: Yes (Other)
  Sender: TEVA
  Company Number: GB-PFIZER INC-PV202500012549

PATIENT
  Age: 6 Decade
  Sex: Female

DRUGS (3)
  1. CARBOPLATIN [Suspect]
     Active Substance: CARBOPLATIN
     Indication: Sarcoma uterus
     Route: 065
  2. CARBOPLATIN [Suspect]
     Active Substance: CARBOPLATIN
     Indication: Sarcoma uterus
     Route: 065
     Dates: start: 20241217
  3. PACLITAXEL [Suspect]
     Active Substance: PACLITAXEL
     Indication: Sarcoma uterus
     Route: 065

REACTIONS (3)
  - Myelosuppression [Unknown]
  - Neutropenic sepsis [Unknown]
  - Off label use [Unknown]
